FAERS Safety Report 11599213 (Version 3)
Quarter: 2015Q4

REPORT INFORMATION
  Report Type: Spontaneous
  Country: US (occurrence: US)
  Receive Date: 20151006
  Receipt Date: 20151123
  Transmission Date: 20160304
  Serious: Yes (Life-Threatening, Hospitalization)
  Sender: FDA-Public Use
  Company Number: US-INCYTE CORPORATION-2015IN004788

PATIENT
  Age: 67 Year
  Sex: Male
  Weight: 108.84 kg

DRUGS (15)
  1. FUROSEMIDE. [Concomitant]
     Active Substance: FUROSEMIDE
  2. NOVOLOG [Concomitant]
     Active Substance: INSULIN ASPART
  3. FENOFIBRATE. [Concomitant]
     Active Substance: FENOFIBRATE
  4. JAKAFI [Suspect]
     Active Substance: RUXOLITINIB
     Dosage: 5 MG, QD
     Route: 048
     Dates: start: 20150903
  5. ASPIRIN. [Concomitant]
     Active Substance: ASPIRIN
  6. SIMVASTATIN. [Concomitant]
     Active Substance: SIMVASTATIN
  7. OXYBUTYNIN [Concomitant]
     Active Substance: OXYBUTYNIN
  8. JAKAFI [Suspect]
     Active Substance: RUXOLITINIB
     Indication: POLYCYTHAEMIA VERA
     Dosage: 5 MG, BID
     Route: 048
     Dates: start: 20150729, end: 20151021
  9. BABY ASPIRIN [Concomitant]
     Active Substance: ASPIRIN
     Dosage: 2 BABY ASPIRIN, UNK
  10. JAKAFI [Suspect]
     Active Substance: RUXOLITINIB
     Dosage: 5 MG, BID
     Route: 048
     Dates: start: 20150905, end: 20151021
  11. LANTUS [Concomitant]
     Active Substance: INSULIN GLARGINE
  12. GABAPENTIN. [Concomitant]
     Active Substance: GABAPENTIN
  13. SODIUM BICARBONATE. [Concomitant]
     Active Substance: SODIUM BICARBONATE
  14. VITAMIN D                          /00107901/ [Concomitant]
     Active Substance: ERGOCALCIFEROL
  15. AMLODIPINE [Concomitant]
     Active Substance: AMLODIPINE BESYLATE

REACTIONS (7)
  - Hyperkalaemia [Not Recovered/Not Resolved]
  - Blood glucose decreased [Recovering/Resolving]
  - Drug ineffective [Unknown]
  - Chronic kidney disease [Not Recovered/Not Resolved]
  - Renal impairment [Recovering/Resolving]
  - Blood potassium increased [Recovering/Resolving]
  - Anaemia [Not Recovered/Not Resolved]

NARRATIVE: CASE EVENT DATE: 201508
